FAERS Safety Report 13914256 (Version 1)
Quarter: 2017Q3

REPORT INFORMATION
  Report Type: Spontaneous
  Country: US (occurrence: None)
  Receive Date: 20170827
  Receipt Date: 20170827
  Transmission Date: 20171127
  Serious: Yes (Death)
  Sender: FDA-Public Use
  Company Number: None

PATIENT
  Age: 75 Year
  Sex: Male

DRUGS (22)
  1. MAGNESIUM-OX [Concomitant]
  2. VITAMIN C [Concomitant]
     Active Substance: ASCORBIC ACID
  3. LACTULOSE. [Concomitant]
     Active Substance: LACTULOSE
  4. ALLOPURINOL. [Concomitant]
     Active Substance: ALLOPURINOL
  5. AMLODIPINE [Concomitant]
     Active Substance: AMLODIPINE BESYLATE
  6. LANTUS [Concomitant]
     Active Substance: INSULIN GLARGINE
  7. VITAMIN D [Concomitant]
     Active Substance: CHOLECALCIFEROL
  8. GLIPIZIDE. [Concomitant]
     Active Substance: GLIPIZIDE
  9. BUMETANIDE. [Concomitant]
     Active Substance: BUMETANIDE
  10. HUMALOG [Concomitant]
     Active Substance: INSULIN LISPRO
  11. SIROLIMUS 0.5MG [Suspect]
     Active Substance: SIROLIMUS
     Indication: RENAL TRANSPLANT
     Route: 048
     Dates: start: 20150729, end: 20170817
  12. MYFORTIC [Suspect]
     Active Substance: MYCOPHENOLATE SODIUM
     Indication: LIVER TRANSPLANT
     Route: 048
     Dates: start: 20160413, end: 20170817
  13. CARVEDILOL. [Concomitant]
     Active Substance: CARVEDILOL
  14. PRAVASTATIN. [Concomitant]
     Active Substance: PRAVASTATIN
  15. ATORVASTATIN [Concomitant]
     Active Substance: ATORVASTATIN
  16. METCLAZONE [Concomitant]
  17. OMEPRAZOLE. [Concomitant]
     Active Substance: OMEPRAZOLE
  18. WAL-DRYL [Concomitant]
     Active Substance: DIPHENHYDRAMINE HYDROCHLORIDE
  19. SPIRONOLACT [Concomitant]
     Active Substance: SPIRONOLACTONE
  20. ASPIRIN-81 [Concomitant]
  21. FERROUS SULF [Suspect]
     Active Substance: FERROUS SULFATE
  22. MULTI-VITAMIN [Concomitant]
     Active Substance: .ALPHA.-TOCOPHEROL ACETATE, DL-\ASCORBIC ACID\CYANOCOBALAMIN\FLUORIDE ION\FOLIC ACID\NIACIN\PYRIDOXINE\RIBOFLAVIN\THIAMINE\VITAMIN A\VITAMIN D

REACTIONS (1)
  - Death [None]

NARRATIVE: CASE EVENT DATE: 20170817
